FAERS Safety Report 5132963-3 (Version None)
Quarter: 2006Q4

REPORT INFORMATION
  Report Type: 
  Country: None (occurrence: None)
  Receive Date: 20061019
  Receipt Date: 20061019
  Transmission Date: 20070319
  Serious: Yes (Death)
  Sender: FDA-Public Use
  Company Number: None

PATIENT
  Sex: Male
  Weight: 133.8111 kg

DRUGS (1)
  1. OXYCONTIN [Suspect]
     Indication: DEPENDENCE
     Dates: start: 20060401, end: 20060701

REACTIONS (1)
  - DRUG ABUSER [None]
